FAERS Safety Report 4648195-9 (Version None)
Quarter: 2005Q2

REPORT INFORMATION
  Report Type: 
  Country: None (occurrence: None)
  Receive Date: 20050331
  Receipt Date: 20050111
  Transmission Date: 20051028
  Serious: No
  Sender: FDA-Public Use
  Company Number: 05P-163-0286049-00

PATIENT
  Age: 81 Year
  Sex: Female
  Weight: 52.1637 kg

DRUGS (4)
  1. HUMIRA [Suspect]
     Indication: RHEUMATOID ARTHRITIS
     Dosage: 1 IN 2 WK, SUBCUTANEOUS
     Route: 058
     Dates: start: 20041102, end: 20041201
  2. FORTEO [Concomitant]
  3. ACETYL SALICYLIC ACID USP BAT [Concomitant]
  4. PREDNISONE [Concomitant]

REACTIONS (1)
  - LYMPHADENOPATHY [None]
